FAERS Safety Report 5308385-9 (Version None)
Quarter: 2007Q2

REPORT INFORMATION
  Report Type: 
  Country: None (occurrence: None)
  Receive Date: 20070420
  Receipt Date: 20070412
  Transmission Date: 20071010
  Serious: Yes (Hospitalization)
  Sender: FDA-Public Use
  Company Number: 163-20785-06111333

PATIENT
  Age: 67 Year
  Sex: Male
  Weight: 77.1115 kg

DRUGS (8)
  1. THALOMID [Suspect]
     Indication: MULTIPLE MYELOMA
     Dosage: 200 MG, DAILY, ORAL
     Route: 048
     Dates: start: 20061103, end: 20061126
  2. DEXAMETHASONE TAB [Suspect]
     Indication: MULTIPLE MYELOMA
     Dosage: 40 MG, DAILY, 4 DAYS ON AND 4 DAYS OFF, ORAL
     Route: 048
     Dates: start: 20061104
  3. OXYCODONE HCL [Concomitant]
  4. PROTONIX [Concomitant]
  5. CYCLOBENZAPRINE HCL [Concomitant]
  6. ZOMETA [Concomitant]
  7. IBUPROFEN [Concomitant]
  8. AMBIEN [Concomitant]

REACTIONS (4)
  - AUTOIMMUNE DISORDER [None]
  - HEPATIC NECROSIS [None]
  - HEPATITIS [None]
  - HEPATOTOXICITY [None]
